FAERS Safety Report 6996942-3 (Version None)
Quarter: 2010Q3

REPORT INFORMATION
  Report Type: 
  Country: None (occurrence: None)
  Receive Date: 20100918
  Receipt Date: 20090831
  Transmission Date: 20110219
  Serious: No
  Sender: FDA-Public Use
  Company Number: US-WYE-H10788709

PATIENT
  Sex: Female
  Weight: 74.46 kg

DRUGS (2)
  1. PRISTIQ [Suspect]
     Indication: DEPRESSION
     Route: 048
     Dates: start: 20090819, end: 20090822
  2. PRISTIQ [Suspect]
     Indication: ANXIETY
     Route: 048
     Dates: start: 20090823

REACTIONS (4)
  - DRY MOUTH [None]
  - INSOMNIA [None]
  - MIDDLE INSOMNIA [None]
  - WEIGHT DECREASED [None]
